FAERS Safety Report 14583764 (Version 1)
Quarter: 2018Q1

REPORT INFORMATION
  Report Type: Spontaneous
  Country: DE (occurrence: DE)
  Receive Date: 20180228
  Receipt Date: 20180228
  Transmission Date: 20180509
  Serious: Yes (Hospitalization, Other)
  Sender: FDA-Public Use
  Company Number: DE-EMD SERONO-E2B_90025786

PATIENT
  Age: 41 Year
  Sex: Female

DRUGS (6)
  1. OMEGA-3                            /01866101/ [Concomitant]
     Active Substance: OMEGA-3 FATTY ACIDS
     Indication: PRODUCT USED FOR UNKNOWN INDICATION
  2. GONAL-F [Suspect]
     Active Substance: FOLLITROPIN
     Indication: MANAGEMENT OF REPRODUCTION
     Route: 058
     Dates: start: 2018
  3. VITAMIN D                          /00107901/ [Concomitant]
     Active Substance: ERGOCALCIFEROL
     Indication: PRODUCT USED FOR UNKNOWN INDICATION
  4. FOLSAEURE [Concomitant]
     Active Substance: FOLIC ACID
     Indication: PRODUCT USED FOR UNKNOWN INDICATION
  5. OVITRELLE [Suspect]
     Active Substance: CHORIOGONADOTROPIN ALFA
     Indication: MANAGEMENT OF REPRODUCTION
     Dates: start: 20180207
  6. CETROTIDE [Suspect]
     Active Substance: CETRORELIX ACETATE
     Indication: MANAGEMENT OF REPRODUCTION
     Dates: start: 2018

REACTIONS (1)
  - Post procedural haemorrhage [Recovered/Resolved]

NARRATIVE: CASE EVENT DATE: 20180209
